FAERS Safety Report 12781782 (Version 10)
Quarter: 2017Q3

REPORT INFORMATION
  Report Type: Report from Study
  Country: US (occurrence: US)
  Receive Date: 20160926
  Receipt Date: 20170922
  Transmission Date: 20171127
  Serious: Yes (Death, Hospitalization)
  Sender: FDA-Public Use
  Company Number: US-ACTELION-A-US2016-142652

PATIENT
  Age: 81 Year
  Sex: Male

DRUGS (8)
  1. BACTRIM [Concomitant]
     Active Substance: SULFAMETHOXAZOLE\TRIMETHOPRIM
  2. OPSUMIT [Suspect]
     Active Substance: MACITENTAN
     Indication: PULMONARY HYPERTENSION
     Dosage: 10 MG, QD
     Route: 048
     Dates: start: 20150701, end: 20170811
  3. LASIX [Concomitant]
     Active Substance: FUROSEMIDE
     Dosage: UNK
     Dates: start: 20170727
  4. FLOMAX [Concomitant]
     Active Substance: TAMSULOSIN HYDROCHLORIDE
  5. PREDNISONE. [Concomitant]
     Active Substance: PREDNISONE
     Dosage: UNK
     Dates: start: 20170729
  6. DOXYCYCLINE. [Concomitant]
     Active Substance: DOXYCYCLINE
     Dosage: UNK
     Dates: start: 20170724
  7. VANCOMYCIN [Concomitant]
     Active Substance: VANCOMYCIN
  8. SOLU-MEDROL [Concomitant]
     Active Substance: METHYLPREDNISOLONE SODIUM SUCCINATE
     Dosage: UNK
     Dates: start: 20170727

REACTIONS (17)
  - Acute respiratory failure [Recovered/Resolved with Sequelae]
  - Lung infiltration [Unknown]
  - Hypotension [Fatal]
  - Haemorrhage [Unknown]
  - Cystoscopy [Recovered/Resolved]
  - Respiratory distress [Fatal]
  - Thrombosis [Recovered/Resolved with Sequelae]
  - Prostate ablation [Recovered/Resolved]
  - Urinary retention [Recovered/Resolved with Sequelae]
  - Asthenia [Unknown]
  - Pulse absent [Not Recovered/Not Resolved]
  - Pulmonary hypertension [Unknown]
  - Drug dose omission [Unknown]
  - Dyspnoea [Fatal]
  - Haematuria [Recovered/Resolved with Sequelae]
  - Urinary tract obstruction [Recovered/Resolved with Sequelae]
  - Hypoxia [Recovered/Resolved with Sequelae]

NARRATIVE: CASE EVENT DATE: 20160805
